FAERS Safety Report 6208149-8 (Version None)
Quarter: 2009Q2

REPORT INFORMATION
  Report Type: 
  Country: None (occurrence: None)
  Receive Date: 20090522
  Receipt Date: 20090511
  Transmission Date: 20091009
  Serious: Yes (Other)
  Sender: FDA-Public Use
  Company Number: 2009S1008474

PATIENT
  Age: 65 Year
  Sex: Female
  Weight: 66 kg

DRUGS (7)
  1. AMLODIPINE [Suspect]
     Indication: BLOOD PRESSURE
     Dosage: 5 MG;DAILY;ORAL
     Route: 048
  2. OMEPRAZOLE [Suspect]
     Indication: HIATUS HERNIA
     Dosage: 20 MG;DAILY;ORAL
     Route: 048
  3. SERETIDE (SERETIDE /01420901/) (2 DF) [Suspect]
     Indication: ASTHMA
     Dosage: 2 DF;TWICE A DAY;INHALATION
     Route: 055
  4. SINGULAIR [Suspect]
     Indication: ASTHMA
     Dosage: 10 MG;DAILY;ORAL
     Route: 048
     Dates: start: 20040101
  5. VENTOLIN [Suspect]
     Indication: ASTHMA
     Dosage: 100 UG;AS NEEDED;INHALATION
     Route: 055
  6. DIHYDROCODEINE BITARTRATE INJ [Concomitant]
  7. TRIAMCINOLONE [Concomitant]

REACTIONS (5)
  - ASTHMA [None]
  - CONDITION AGGRAVATED [None]
  - COUGH [None]
  - DYSPNOEA [None]
  - INCREASED UPPER AIRWAY SECRETION [None]
